FAERS Safety Report 6061620-4 (Version None)
Quarter: 2009Q1

REPORT INFORMATION
  Report Type: 
  Country: None (occurrence: None)
  Receive Date: 20090202
  Receipt Date: 20090123
  Transmission Date: 20090719
  Serious: Yes (Hospitalization)
  Sender: FDA-Public Use
  Company Number: A0754096A

PATIENT
  Age: 47 Year
  Sex: Male
  Weight: 104.5 kg

DRUGS (7)
  1. AVANDIA [Suspect]
     Dosage: 8MG PER DAY
     Route: 048
     Dates: start: 20020201, end: 20070601
  2. GLUCOPHAGE [Concomitant]
  3. INSULIN [Concomitant]
  4. LORTAB [Concomitant]
  5. KDUR [Concomitant]
  6. NEURONTIN [Concomitant]
  7. AMBIEN [Concomitant]

REACTIONS (3)
  - CARDIAC FAILURE CONGESTIVE [None]
  - DEPRESSION [None]
  - HYPERTENSION [None]
